FAERS Safety Report 12708694 (Version 2)
Quarter: 2016Q4

REPORT INFORMATION
  Report Type: Report from Study
  Country: CA (occurrence: CA)
  Receive Date: 20160901
  Receipt Date: 20161117
  Transmission Date: 20170207
  Serious: Yes (Hospitalization)
  Sender: FDA-Public Use
  Company Number: CA-TAKEDA-2016TUS015041

PATIENT
  Age: 45 Year
  Sex: Male

DRUGS (2)
  1. VEDOLIZUMAB [Suspect]
     Active Substance: VEDOLIZUMAB
     Indication: CROHN^S DISEASE
     Dosage: 300 MG, UNK
     Route: 042
     Dates: start: 20160512, end: 20161020
  2. OXYNEO [Concomitant]
     Active Substance: OXYCODONE
     Dosage: 10 MG, UNK

REACTIONS (4)
  - Crohn^s disease [Unknown]
  - Fistula [Unknown]
  - Drug ineffective [Unknown]
  - Abscess [Unknown]

NARRATIVE: CASE EVENT DATE: 2016
